FAERS Safety Report 13740662 (Version 1)
Quarter: 2017Q3

REPORT INFORMATION
  Report Type: Spontaneous
  Country: US (occurrence: US)
  Receive Date: 20170710
  Receipt Date: 20170710
  Transmission Date: 20171127
  Serious: Yes (Disabling, Other)
  Sender: FDA-Public Use
  Company Number: None

PATIENT
  Age: 54 Year
  Sex: Female
  Weight: 81 kg

DRUGS (28)
  1. BIOTIN [Concomitant]
     Active Substance: BIOTIN
  2. MSM [Concomitant]
     Active Substance: DIMETHYL SULFONE
  3. TUMERIC [Concomitant]
     Active Substance: HERBALS\TURMERIC
  4. VITAMIN C [Concomitant]
     Active Substance: ASCORBIC ACID
  5. B-6 [Concomitant]
  6. FOLIC ACID. [Concomitant]
     Active Substance: FOLIC ACID
  7. PANTOTHENIC ACID [Concomitant]
     Active Substance: PANTOTHENIC ACID
  8. ACETYL L-CARNITINE HCI [Concomitant]
  9. L-ARGININE [Concomitant]
     Active Substance: ARGININE
  10. DHA [Concomitant]
     Active Substance: DIETARY SUPPLEMENT
  11. COQ10 [Concomitant]
     Active Substance: UBIDECARENONE
  12. CHELAED MAGNESIUM [Concomitant]
  13. VITAMIN D3 [Concomitant]
     Active Substance: CHOLECALCIFEROL
  14. D-CALCIUM PANTOTHENATE [Concomitant]
  15. LEVOTHYROXINE. [Concomitant]
     Active Substance: LEVOTHYROXINE
  16. ALPHA LIPOIC ACID [Concomitant]
     Active Substance: .ALPHA.-LIPOIC ACID
  17. WHEELCHAIR [Concomitant]
     Active Substance: DEVICE
  18. PROBIOTIC [Concomitant]
     Active Substance: PROBIOTICS NOS
  19. THIAMIN [Concomitant]
     Active Substance: THIAMINE
  20. SODIUM [Concomitant]
     Active Substance: SODIUM
  21. GLUCOSAMINE HCI [Concomitant]
  22. CLONAZEPAM. [Suspect]
     Active Substance: CLONAZEPAM
     Indication: ANXIETY
     Dosage: ?          OTHER STRENGTH:MG;QUANTITY:1 TABLET(S);EVERY 8 HOURS ORAL?
     Route: 048
  23. VITAMIN B12 [Concomitant]
     Active Substance: CYANOCOBALAMIN
  24. RIBOFLAVIN [Concomitant]
     Active Substance: RIBOFLAVIN
  25. NIACIN. [Concomitant]
     Active Substance: NIACIN
  26. LARCH TREE EXTRACT [Concomitant]
  27. CURCUMIN [Concomitant]
     Active Substance: CURCUMIN
  28. CHONDOITIN SULFATE [Concomitant]

REACTIONS (15)
  - Anger [None]
  - Suicidal ideation [None]
  - Generalised anxiety disorder [None]
  - Paralysis [None]
  - Post-traumatic stress disorder [None]
  - Palpitations [None]
  - Pain [None]
  - Deafness [None]
  - Fear [None]
  - Nausea [None]
  - Panic attack [None]
  - Confusional state [None]
  - Sleep disorder [None]
  - Amnesia [None]
  - Crying [None]
